FAERS Safety Report 22986221 (Version 7)
Quarter: 2024Q1

REPORT INFORMATION
  Report Type: Spontaneous
  Country: ES (occurrence: ES)
  Receive Date: 20230926
  Receipt Date: 20240301
  Transmission Date: 20240410
  Serious: Yes (Death, Hospitalization, Other)
  Sender: FDA-Public Use
  Company Number: ES-BRISTOL-MYERS SQUIBB COMPANY-2023-125276

PATIENT
  Age: 77 Year
  Sex: Male
  Weight: 76.3 kg

DRUGS (33)
  1. LENALIDOMIDE [Suspect]
     Active Substance: LENALIDOMIDE
     Indication: Plasma cell myeloma
     Dosage: 5 MILLIGRAM
     Route: 048
     Dates: start: 20191021, end: 20230717
  2. LENALIDOMIDE [Suspect]
     Active Substance: LENALIDOMIDE
     Dosage: 5 MILLIGRAM
     Route: 048
     Dates: start: 20230629, end: 20230629
  3. LENALIDOMIDE [Suspect]
     Active Substance: LENALIDOMIDE
     Dosage: 5 MILLIGRAM
     Route: 042
     Dates: start: 20230629, end: 20230629
  4. LENALIDOMIDE [Suspect]
     Active Substance: LENALIDOMIDE
     Dosage: 5 MILLIGRAM
     Route: 048
     Dates: start: 20230719, end: 20230719
  5. DEXAMETHASONE [Suspect]
     Active Substance: DEXAMETHASONE
     Indication: Plasma cell myeloma
     Dosage: 12 MILLIGRAM
     Route: 048
     Dates: start: 20230629, end: 20230629
  6. DEXAMETHASONE [Suspect]
     Active Substance: DEXAMETHASONE
     Dosage: 12 MILLIGRAM
     Route: 048
     Dates: start: 20230706, end: 20230706
  7. DEXAMETHASONE [Suspect]
     Active Substance: DEXAMETHASONE
     Dosage: 12 MILLIGRAM
     Route: 048
     Dates: start: 20230713, end: 20230713
  8. DEXAMETHASONE [Suspect]
     Active Substance: DEXAMETHASONE
     Dosage: 12 MILLIGRAM
     Route: 048
     Dates: start: 20230720, end: 20230816
  9. DEXAMETHASONE [Suspect]
     Active Substance: DEXAMETHASONE
     Dosage: 12 MILLIGRAM
     Route: 048
     Dates: start: 20230816
  10. ISATUXIMAB [Suspect]
     Active Substance: ISATUXIMAB
     Indication: Plasma cell myeloma
     Dosage: UNK
     Route: 042
  11. ISATUXIMAB [Suspect]
     Active Substance: ISATUXIMAB
     Dosage: 10 MILLIGRAM/KILOGRAM (29-JUN-2023 11:35:00 / 29-JUN-2023 12:09:00 34 MIN ACTUAL DOSE OF 790 MG)
     Route: 042
     Dates: start: 20230629, end: 20230726
  12. ISATUXIMAB [Suspect]
     Active Substance: ISATUXIMAB
     Dosage: 10 MILLIGRAM/KILOGRAM (29-JUN-2023 11:35:00 / 29-JUN-2023 12:09:00 34 MIN, ACTUAL DOSE OF 780 MG)
     Route: 042
     Dates: start: 20230729, end: 20230729
  13. ASPIRIN [Concomitant]
     Active Substance: ASPIRIN
     Indication: Prophylaxis
     Dosage: UNK
     Route: 065
     Dates: start: 20221114
  14. ACYCLOVIR [Concomitant]
     Active Substance: ACYCLOVIR
     Indication: Prophylaxis
     Dosage: 40 MILLIGRAM
     Route: 048
     Dates: start: 20221114
  15. ASPIRIN [Concomitant]
     Active Substance: ASPIRIN
     Indication: Anticoagulant therapy
     Dosage: 100 MILLIGRAM, ONCE A DAY
     Route: 048
     Dates: start: 20190112
  16. AMLODIPINE [Concomitant]
     Active Substance: AMLODIPINE BESYLATE
     Indication: Hypertension
     Dosage: 5 MILLIGRAM, ONCE A DAY
     Route: 048
     Dates: start: 20191008
  17. BUSCAPINA [Concomitant]
     Indication: Abdominal pain
     Dosage: 10 MILLIGRAM
     Route: 048
  18. DEXCHLORPHENIRAMINE [Concomitant]
     Active Substance: DEXCHLORPHENIRAMINE
     Indication: Prophylaxis
     Dosage: 5 MILLIGRAM, 1 TOTAL (TOTAL DAILY DOSE)
     Route: 042
     Dates: start: 20230629, end: 20230629
  19. DEXCHLORPHENIRAMINE [Concomitant]
     Active Substance: DEXCHLORPHENIRAMINE
     Dosage: 5 MILLIGRAM, 1 TOTAL (TOTAL DAILY DOSE)
     Route: 042
     Dates: start: 20230726, end: 20230726
  20. DULOXETINE [Concomitant]
     Active Substance: DULOXETINE
     Indication: Depression
     Dosage: 60 MILLIGRAM, TWO TIMES A DAY
     Route: 048
     Dates: start: 20221114
  21. FAMOTIDINE [Concomitant]
     Active Substance: FAMOTIDINE
     Indication: Prophylaxis
     Dosage: 20 MILLIGRAM, 1 TOTAL (TOTAL DAILY DOSE)
     Route: 048
     Dates: start: 20230629, end: 20230629
  22. LACTULOSE [Concomitant]
     Active Substance: LACTULOSE
     Indication: Prophylaxis
     Dosage: UNK
     Route: 065
     Dates: start: 20221114
  23. LEVOFLOXACIN [Concomitant]
     Active Substance: LEVOFLOXACIN
     Indication: Prophylaxis
     Dosage: UNK
     Route: 065
     Dates: start: 20191021
  24. OMEPRAZOLE [Concomitant]
     Active Substance: OMEPRAZOLE
     Indication: Prophylaxis against gastrointestinal ulcer
     Dosage: 20 MILLIGRAM, ONCE A DAY
     Route: 065
     Dates: start: 20221114
  25. OMEPRAZOLE [Concomitant]
     Active Substance: OMEPRAZOLE
     Indication: Prophylaxis
  26. ACETAMINOPHEN [Concomitant]
     Active Substance: ACETAMINOPHEN
     Indication: Prophylaxis
     Dosage: 1000 MILLIGRAM, 1 TOTAL (TOTAL DAILY DOSE)
     Route: 048
     Dates: start: 20230629, end: 20230629
  27. ACETAMINOPHEN [Concomitant]
     Active Substance: ACETAMINOPHEN
     Dosage: 1000 MILLIGRAM, 1 TOTAL (TOTAL DAILY DOSE)
     Route: 048
     Dates: start: 20230726, end: 20230726
  28. PREGABALIN [Concomitant]
     Active Substance: PREGABALIN
     Indication: Prophylaxis
     Dosage: 75 MILLIGRAM, TWO TIMES A DAY
     Route: 048
     Dates: start: 20221114
  29. SILODOSIN [Concomitant]
     Active Substance: SILODOSIN
     Indication: Prophylaxis
     Dosage: 8 MILLIGRAM, ONCE A DAY
     Route: 048
     Dates: start: 20221114
  30. SILODOSIN [Concomitant]
     Active Substance: SILODOSIN
     Indication: Prostatic disorder
  31. NALOXONE HYDROCHLORIDE\OXYCODONE HYDROCHLORIDE [Concomitant]
     Active Substance: NALOXONE HYDROCHLORIDE\OXYCODONE HYDROCHLORIDE
     Indication: Pain
     Dosage: UNK
     Route: 065
     Dates: start: 20230823
  32. NALOXONE HYDROCHLORIDE\OXYCODONE HYDROCHLORIDE [Concomitant]
     Active Substance: NALOXONE HYDROCHLORIDE\OXYCODONE HYDROCHLORIDE
     Dosage: UNK (10MG/5MG)
     Route: 048
     Dates: start: 20230901
  33. NALOXONE HYDROCHLORIDE\OXYCODONE HYDROCHLORIDE [Concomitant]
     Active Substance: NALOXONE HYDROCHLORIDE\OXYCODONE HYDROCHLORIDE
     Indication: Pain
     Dosage: UNK, 10MG/5MG
     Route: 048
     Dates: start: 20230901

REACTIONS (8)
  - Hepatic cancer [Fatal]
  - Acute kidney injury [Fatal]
  - Neuroendocrine tumour of the lung metastatic [Fatal]
  - Pain [Not Recovered/Not Resolved]
  - Metastases to liver [Unknown]
  - Metastases to lung [Unknown]
  - Neuroendocrine carcinoma [Unknown]
  - Off label use [Unknown]

NARRATIVE: CASE EVENT DATE: 20230823
